FAERS Safety Report 9478488 (Version 2)
Quarter: 2013Q3

REPORT INFORMATION
  Report Type: Report from Study
  Country: AR (occurrence: AR)
  Receive Date: 20130827
  Receipt Date: 20130904
  Transmission Date: 20140515
  Serious: Yes (Other)
  Sender: FDA-Public Use
  Company Number: AR-ROCHE-1265425

PATIENT
  Sex: Male

DRUGS (2)
  1. RANIBIZUMAB [Suspect]
     Indication: INTRAOCULAR PRESSURE INCREASED
     Route: 050
     Dates: start: 201209
  2. RANIBIZUMAB [Suspect]
     Indication: GLAUCOMA
     Route: 050
     Dates: start: 201307

REACTIONS (1)
  - Blindness unilateral [Not Recovered/Not Resolved]
